FAERS Safety Report 4776641-9 (Version None)
Quarter: 2005Q3

REPORT INFORMATION
  Report Type: 
  Country: None (occurrence: None)
  Receive Date: 20050923
  Receipt Date: 20050916
  Transmission Date: 20060218
  Serious: Yes (Other)
  Sender: FDA-Public Use
  Company Number: US-SOLVAY-00205002958

PATIENT
  Age: 23 Year
  Sex: Male

DRUGS (3)
  1. ANADROL [Suspect]
     Indication: DRUG ABUSER
     Dosage: DAILY DOSE: 250 MILLIGRAM(S)
     Route: 048
  2. METHANDROSTENOLONE [Suspect]
     Indication: DRUG ABUSER
     Dosage: DAILY DOSE: 30 MILLIGRAM(S)
     Route: 065
  3. TESTOSTERONE CYPIONATE [Suspect]
     Indication: DRUG ABUSER
     Dosage: 800 MILLIGRAMS WEEKLY
     Route: 065

REACTIONS (8)
  - ABNORMAL BEHAVIOUR [None]
  - AGGRESSION [None]
  - DELUSION [None]
  - GRANDIOSITY [None]
  - MANIA [None]
  - MOOD DISORDER DUE TO A GENERAL MEDICAL CONDITION [None]
  - MURDER [None]
  - PSYCHOTIC DISORDER [None]
